FAERS Safety Report 24562267 (Version 2)
Quarter: 2025Q1

REPORT INFORMATION
  Report Type: Spontaneous
  Country: US (occurrence: US)
  Receive Date: 20241029
  Receipt Date: 20250109
  Transmission Date: 20250409
  Serious: No
  Sender: PFIZER
  Company Number: US-PFIZER INC-202400285392

PATIENT
  Age: 16 Year
  Sex: Male

DRUGS (1)
  1. GENOTROPIN [Suspect]
     Active Substance: SOMATROPIN
     Indication: Growth hormone deficiency
     Dosage: 2 MG, 1X/DAY

REACTIONS (4)
  - Drug administered in wrong device [Unknown]
  - Wrong technique in device usage process [Unknown]
  - Device use confusion [Unknown]
  - Product communication issue [Unknown]
